FAERS Safety Report 15720310 (Version 1)
Quarter: 2018Q4

REPORT INFORMATION
  Report Type: Spontaneous
  Country: US (occurrence: US)
  Receive Date: 20181213
  Receipt Date: 20181213
  Transmission Date: 20190205
  Serious: No
  Sender: FDA-Public Use
  Company Number: US-PERRIGO-18US001753

PATIENT
  Age: 68 Year
  Sex: Male
  Weight: 73.47 kg

DRUGS (4)
  1. MUPIROCIN. [Suspect]
     Active Substance: MUPIROCIN
     Indication: SCAB
     Dosage: ONE APPLICATION, BID
     Route: 061
     Dates: start: 20180209
  2. CLINDAMYCIN PHOSPHATE. [Suspect]
     Active Substance: CLINDAMYCIN PHOSPHATE
     Indication: ACNE
     Dosage: ONE APPLICATION, BID
     Route: 061
     Dates: start: 20180209
  3. MUPIROCIN. [Suspect]
     Active Substance: MUPIROCIN
     Indication: SKIN FISSURES
  4. TRIAMCINOLONE ACETONIDE. [Concomitant]
     Active Substance: TRIAMCINOLONE ACETONIDE
     Indication: PRODUCT USED FOR UNKNOWN INDICATION
     Dosage: ONE APPLICATION, BID
     Route: 061
     Dates: start: 201506, end: 20180213

REACTIONS (3)
  - Product administration error [Unknown]
  - Inappropriate schedule of product administration [Unknown]
  - Diarrhoea [Unknown]

NARRATIVE: CASE EVENT DATE: 201802
